FAERS Safety Report 19597604 (Version 4)
Quarter: 2021Q3

REPORT INFORMATION
  Report Type: Spontaneous
  Country: CA (occurrence: CA)
  Receive Date: 20210723
  Receipt Date: 20210927
  Transmission Date: 20211014
  Serious: Yes (Other)
  Sender: FDA-Public Use
  Company Number: CA-CELLTRION INC.-2021CA003384

PATIENT

DRUGS (8)
  1. INFLECTRA [Suspect]
     Active Substance: INFLIXIMAB-DYYB
     Dosage: 300 MG 0, 2 AND 6, THEN EVERY 8 WEEKS
     Route: 042
     Dates: start: 20210407
  2. INFLECTRA [Suspect]
     Active Substance: INFLIXIMAB-DYYB
     Dosage: 500 MG, EVERY 6 WEEK
     Route: 042
     Dates: start: 20210708
  3. INFLECTRA [Suspect]
     Active Substance: INFLIXIMAB-DYYB
     Dosage: 300 MG 0, 2 AND 6, THEN EVERY 8 WEEKS)
     Route: 042
     Dates: start: 20210310
  4. INFLECTRA [Suspect]
     Active Substance: INFLIXIMAB-DYYB
     Dosage: 500 MG, EVERY 6 WEEK
     Route: 042
     Dates: start: 20210819
  5. INFLECTRA [Suspect]
     Active Substance: INFLIXIMAB-DYYB
     Dosage: 500 MG, EVERY 4 WEEK
     Route: 042
     Dates: start: 20210916
  6. CIMZIA [Concomitant]
     Active Substance: CERTOLIZUMAB PEGOL
     Dosage: 1 DF, DOSAGE NOT AVAILABLE
     Route: 065
  7. INFLECTRA [Suspect]
     Active Substance: INFLIXIMAB-DYYB
     Indication: ANKYLOSING SPONDYLITIS
     Dosage: 300 MG 0, 2 AND 6, THEN EVERY 8 WEEKS
     Route: 042
     Dates: start: 20210223, end: 20210407
  8. INFLECTRA [Suspect]
     Active Substance: INFLIXIMAB-DYYB
     Dosage: 500 MG, EVERY 6 WEEK
     Route: 042
     Dates: start: 20210527, end: 20210819

REACTIONS (12)
  - Urticaria [Recovered/Resolved]
  - Off label use [Unknown]
  - Hot flush [Recovering/Resolving]
  - Dizziness [Recovering/Resolving]
  - Blood pressure increased [Unknown]
  - Blood pressure fluctuation [Unknown]
  - Erythema [Recovered/Resolved]
  - Incorrect dose administered [Unknown]
  - Rash [Recovered/Resolved]
  - Dyspnoea [Unknown]
  - Pruritus [Recovered/Resolved]
  - Chest discomfort [Recovering/Resolving]

NARRATIVE: CASE EVENT DATE: 20210223
